FAERS Safety Report 9247280 (Version 1)
Quarter: 2013Q2

REPORT INFORMATION
  Report Type: Spontaneous
  Country: US (occurrence: US)
  Receive Date: 20130423
  Receipt Date: 20130423
  Transmission Date: 20140414
  Serious: Yes (Other)
  Sender: FDA-Public Use
  Company Number: US-SHIRE-ALL1-2013-02529

PATIENT
  Sex: Male

DRUGS (2)
  1. ELAPRASE [Suspect]
     Indication: PRODUCT USED FOR UNKNOWN INDICATION
     Dosage: UNK, UNKNOWN
     Route: 041
  2. OTHER ANTIEPILEPTICS [Concomitant]
     Indication: CONVULSION
     Dosage: UNK, UNKNOWN
     Route: 065

REACTIONS (2)
  - Convulsion [Unknown]
  - Condition aggravated [Unknown]
